FAERS Safety Report 17999062 (Version 1)
Quarter: 2020Q3

REPORT INFORMATION
  Report Type: Spontaneous
  Country: US (occurrence: US)
  Receive Date: 20200708
  Receipt Date: 20200708
  Transmission Date: 20201103
  Serious: Yes (Hospitalization)
  Sender: FDA-Public Use
  Company Number: None

PATIENT
  Age: 62 Year
  Sex: Male

DRUGS (12)
  1. SAW PALMETTO [Concomitant]
     Active Substance: HERBALS\SAW PALMETTO
     Dates: start: 20200317
  2. ASTELIN [Concomitant]
     Active Substance: AZELASTINE HYDROCHLORIDE
     Dates: start: 20200317
  3. THERAGRAM?M [Concomitant]
     Dates: start: 20200317
  4. ESCITALOPRAM [Concomitant]
     Active Substance: ESCITALOPRAM OXALATE
     Dates: start: 20200317
  5. GABAPENTIN. [Concomitant]
     Active Substance: GABAPENTIN
     Dates: start: 20200317
  6. CAPECITABINE, 500 MG [Suspect]
     Active Substance: CAPECITABINE
     Indication: COLON CANCER
     Route: 048
     Dates: start: 20200325
  7. OXYCODONE [Concomitant]
     Active Substance: OXYCODONE
     Dates: start: 20200317
  8. NASONEX [Concomitant]
     Active Substance: MOMETASONE FUROATE
     Dates: start: 20200317
  9. VITAMIN D3 [Concomitant]
     Active Substance: CHOLECALCIFEROL
     Dates: start: 20200317
  10. ALEVE [Concomitant]
     Active Substance: NAPROXEN SODIUM
     Dates: start: 20200317
  11. ATORVASTATIN [Concomitant]
     Active Substance: ATORVASTATIN
     Dates: start: 20200317
  12. FISH OIL [Concomitant]
     Active Substance: FISH OIL
     Dates: start: 20200317

REACTIONS (8)
  - Rash [None]
  - Abdominal discomfort [None]
  - Vomiting [None]
  - Tunnel vision [None]
  - Diarrhoea [None]
  - Dizziness [None]
  - Fall [None]
  - Nasopharyngitis [None]

NARRATIVE: CASE EVENT DATE: 20200630
